FAERS Safety Report 21138217 (Version 6)
Quarter: 2023Q1

REPORT INFORMATION
  Report Type: Report from Study
  Country: CA (occurrence: CA)
  Receive Date: 20220727
  Receipt Date: 20230214
  Transmission Date: 20230417
  Serious: Yes (Other)
  Sender: FDA-Public Use
  Company Number: CA-UCBSA-2022041528

PATIENT
  Sex: Female

DRUGS (4)
  1. CERTOLIZUMAB PEGOL [Suspect]
     Active Substance: CERTOLIZUMAB PEGOL
     Indication: Psoriatic arthropathy
     Dosage: 400 MILLIGRAM, EV 2 WEEKS(QOW)
     Route: 058
     Dates: start: 20220130, end: 2022
  2. CERTOLIZUMAB PEGOL [Suspect]
     Active Substance: CERTOLIZUMAB PEGOL
     Dosage: 400 MILLIGRAM, EV 4 WEEKS
     Route: 058
     Dates: start: 2022
  3. ISONIAZID [Concomitant]
     Active Substance: ISONIAZID
     Indication: Latent tuberculosis
     Dosage: UNK
     Dates: start: 2022
  4. PYRIDOXINE [Concomitant]
     Active Substance: PYRIDOXINE
     Indication: Latent tuberculosis
     Dosage: UNK
     Dates: start: 2022

REACTIONS (4)
  - Latent tuberculosis [Not Recovered/Not Resolved]
  - Asthenia [Not Recovered/Not Resolved]
  - Vomiting [Not Recovered/Not Resolved]
  - Migraine [Not Recovered/Not Resolved]

NARRATIVE: CASE EVENT DATE: 20220101
